FAERS Safety Report 15546806 (Version 1)
Quarter: 2018Q4

REPORT INFORMATION
  Report Type: Spontaneous
  Country: DE (occurrence: DE)
  Receive Date: 20181024
  Receipt Date: 20181024
  Transmission Date: 20190205
  Serious: Yes (Other)
  Sender: FDA-Public Use
  Company Number: DE-B.I. PHARMACEUTICALS,INC./RIDGEFIELD-2018-12-003455

PATIENT
  Age: 86 Year
  Sex: Male

DRUGS (2)
  1. METFORMIN [Concomitant]
     Active Substance: METFORMIN HYDROCHLORIDE
     Indication: PRODUCT USED FOR UNKNOWN INDICATION
     Dosage: INTAKE SINCE YEARS
     Route: 065
  2. JARDIANCE [Suspect]
     Active Substance: EMPAGLIFLOZIN
     Indication: PRODUCT USED FOR UNKNOWN INDICATION
     Route: 065

REACTIONS (34)
  - Urine odour abnormal [Unknown]
  - Restlessness [Unknown]
  - Blood glucose increased [Unknown]
  - Somnolence [Unknown]
  - Pollakiuria [Unknown]
  - Thirst [Unknown]
  - Erythema [Unknown]
  - Abdominal pain upper [Unknown]
  - Urine ketone body [Unknown]
  - Oral mucosal erythema [Unknown]
  - Oral mucosal eruption [Unknown]
  - Pelvic pain [Unknown]
  - Dizziness [Unknown]
  - Dysuria [Unknown]
  - Rash [Unknown]
  - Syncope [Unknown]
  - Fall [Unknown]
  - Tremor [Unknown]
  - Heart rate increased [Unknown]
  - Respiratory rate increased [Unknown]
  - Micturition urgency [Unknown]
  - Genital infection fungal [Unknown]
  - Blood ketone body increased [Unknown]
  - Confusional state [Unknown]
  - Fatigue [Unknown]
  - Skin disorder [Unknown]
  - Back pain [Unknown]
  - Weight decreased [Unknown]
  - Skin odour abnormal [Unknown]
  - Dysgeusia [Unknown]
  - Nausea [Unknown]
  - Pruritus [Unknown]
  - Asthenia [Unknown]
  - Urine abnormality [Unknown]
